FAERS Safety Report 16140103 (Version 1)
Quarter: 2019Q1

REPORT INFORMATION
  Report Type: Spontaneous
  Country: US (occurrence: US)
  Receive Date: 20190226
  Receipt Date: 20190226
  Transmission Date: 20190418
  Serious: Yes (Hospitalization)
  Sender: FDA-Public Use
  Company Number: None

PATIENT
  Age: 54 Year
  Sex: Female
  Weight: 70.31 kg

DRUGS (17)
  1. METOPROLOL. [Concomitant]
     Active Substance: METOPROLOL
  2. ITRAZONAZOLE [Concomitant]
  3. DILTIAZEM. [Concomitant]
     Active Substance: DILTIAZEM
  4. BACTRIM [Concomitant]
     Active Substance: SULFAMETHOXAZOLE\TRIMETHOPRIM
  5. GABAPENTIN. [Concomitant]
     Active Substance: GABAPENTIN
  6. ATORVASTATIN [Concomitant]
     Active Substance: ATORVASTATIN
  7. DILTIAZEM. [Concomitant]
     Active Substance: DILTIAZEM
  8. ALBUTEROL. [Concomitant]
     Active Substance: ALBUTEROL
  9. PREDNISONE. [Concomitant]
     Active Substance: PREDNISONE
  10. FUROSEMIDE. [Concomitant]
     Active Substance: FUROSEMIDE
  11. AZITHROMYCIN ANHYDROUS. [Concomitant]
     Active Substance: AZITHROMYCIN ANHYDROUS
  12. PANTOPRAZOLE 20MG [Suspect]
     Active Substance: PANTOPRAZOLE SODIUM
     Indication: LUNG TRANSPLANT
     Route: 048
     Dates: start: 20180622
  13. TACROLIMUS. [Concomitant]
     Active Substance: TACROLIMUS
  14. VALGANCICLOVIR. [Concomitant]
     Active Substance: VALGANCICLOVIR
  15. ROPINITOLE [Concomitant]
  16. TRANSPLANT [Concomitant]
  17. NO DRUG NAME [Concomitant]

REACTIONS (1)
  - Pulmonary function test decreased [None]
